FAERS Safety Report 6581486-3 (Version None)
Quarter: 2010Q1

REPORT INFORMATION
  Report Type: 
  Country: None (occurrence: None)
  Receive Date: 20100215
  Receipt Date: 20100205
  Transmission Date: 20100710
  Serious: Yes (Hospitalization, Other)
  Sender: FDA-Public Use
  Company Number: B0629421A

PATIENT
  Age: 74 Year
  Sex: Male

DRUGS (1)
  1. VALTREX [Suspect]
     Indication: HERPES ZOSTER
     Dosage: 1000MG TWICE PER DAY
     Route: 048
     Dates: start: 20050530, end: 20050601

REACTIONS (5)
  - AFFECT LABILITY [None]
  - CRYING [None]
  - ENCEPHALOPATHY [None]
  - EUPHORIC MOOD [None]
  - GAIT DISTURBANCE [None]
